FAERS Safety Report 6492378-2 (Version None)
Quarter: 2009Q4

REPORT INFORMATION
  Report Type: 
  Country: None (occurrence: None)
  Receive Date: 20091211
  Receipt Date: 20091211
  Transmission Date: 20100525
  Serious: No
  Sender: FDA-Public Use
  Company Number: None

PATIENT
  Sex: Female

DRUGS (2)
  1. LASIX [Suspect]
     Indication: CORONARY ARTERY BYPASS
     Dosage: 80MG
  2. LASIX [Suspect]
     Indication: HYPERTENSION
     Dosage: 80MG

REACTIONS (2)
  - NO THERAPEUTIC RESPONSE [None]
  - PRODUCT SUBSTITUTION ISSUE [None]
